FAERS Safety Report 6578289-2 (Version None)
Quarter: 2010Q1

REPORT INFORMATION
  Report Type: 
  Country: None (occurrence: None)
  Receive Date: 20100211
  Receipt Date: 20100205
  Transmission Date: 20100710
  Serious: Yes (Disabling)
  Sender: FDA-Public Use
  Company Number: B0631479A

PATIENT
  Age: 23 Year
  Sex: Female
  Weight: 57.15 kg

DRUGS (4)
  1. PANDEMRIX [Suspect]
     Indication: PROPHYLAXIS
     Dosage: 1INJ SINGLE DOSE
     Route: 065
  2. RELENZA [Suspect]
     Indication: DRUG USE FOR UNKNOWN INDICATION
     Route: 065
  3. TAMIFLU [Suspect]
     Indication: DRUG USE FOR UNKNOWN INDICATION
     Route: 065
  4. INFLUENZA VACCINE [Concomitant]
     Indication: PROPHYLAXIS
     Dosage: 1INJ SINGLE DOSE
     Route: 065

REACTIONS (4)
  - ASTHENIA [None]
  - BODY TEMPERATURE [None]
  - DIZZINESS [None]
  - PAIN [None]
